FAERS Safety Report 7985226-2 (Version None)
Quarter: 2011Q4

REPORT INFORMATION
  Report Type: 
  Country: None (occurrence: None)
  Receive Date: 20111216
  Receipt Date: 20100429
  Transmission Date: 20120403
  Serious: Yes (Other)
  Sender: FDA-Public Use
  Company Number: PHHY2010US092736

PATIENT

DRUGS (1)
  1. EVEROLIMUS [Suspect]
     Dosage: 10 MG, DAILY
     Route: 048

REACTIONS (1)
  - MYOCARDITIS [None]
